FAERS Safety Report 8740422 (Version 2)
Quarter: 2013Q4

REPORT INFORMATION
  Report Type: Spontaneous
  Country: US (occurrence: US)
  Receive Date: 20120823
  Receipt Date: 20131101
  Transmission Date: 20140711
  Serious: No
  Sender: FDA-Public Use
  Company Number: US-009507513-1208USA006368

PATIENT
  Sex: Male
  Weight: 78.5 kg

DRUGS (1)
  1. VICTRELIS [Suspect]
     Route: 048

REACTIONS (9)
  - White blood cell disorder [Unknown]
  - Weight decreased [Unknown]
  - Red blood cell count decreased [Unknown]
  - Fatigue [Unknown]
  - Dyspnoea [Unknown]
  - Nervousness [Unknown]
  - Anxiety [Unknown]
  - Irritability [Unknown]
  - Mood swings [Unknown]
